FAERS Safety Report 8804115 (Version 1)
Quarter: 2012Q4

REPORT INFORMATION
  Report Type: 
  Country: CH (occurrence: CH)
  Receive Date: 20120924
  Receipt Date: 20120924
  Transmission Date: 20130627
  Serious: Yes (Congenital Anomaly)
  Sender: FDA-Public Use
  Company Number: CH-GLAXOSMITHKLINE-B0832386A

PATIENT

DRUGS (5)
  1. LAMICTAL [Suspect]
     Indication: EPILEPSY
     Dosage: 150MG Per day
     Route: 064
     Dates: start: 201201
  2. AMOXICILLINE [Suspect]
     Indication: PRODUCT USED FOR UNKNOWN INDICATION
     Route: 064
     Dates: start: 201201, end: 201201
  3. ACYCLOVIR [Suspect]
     Indication: ENCEPHALITIS HERPES
     Dosage: 600MG Three times per day
     Route: 064
     Dates: start: 201201
  4. RIVOTRIL [Suspect]
     Indication: EPILEPSY
     Dosage: .5MG Twice per day
     Route: 064
     Dates: start: 201201
  5. ROCEPHIN [Suspect]
     Indication: PRODUCT USED FOR UNKNOWN INDICATION
     Route: 064
     Dates: start: 201201, end: 201201

REACTIONS (3)
  - Transposition of the great vessels [Unknown]
  - Abortion induced [Recovered/Resolved]
  - Foetal exposure during pregnancy [Recovered/Resolved]
